FAERS Safety Report 7676122-9 (Version None)
Quarter: 2011Q3

REPORT INFORMATION
  Report Type: 
  Country: None (occurrence: None)
  Receive Date: 20110811
  Receipt Date: 20110801
  Transmission Date: 20111222
  Serious: Yes (Hospitalization)
  Sender: FDA-Public Use
  Company Number: US-JNJFOC-20080402389

PATIENT
  Sex: Male
  Weight: 49 kg

DRUGS (8)
  1. METRONIDAZOLE [Concomitant]
  2. REMICADE [Suspect]
     Indication: CROHN'S DISEASE
     Dosage: TOTAL 8 DOSES
     Route: 042
     Dates: start: 20060531
  3. REMICADE [Suspect]
     Route: 042
     Dates: start: 20050520
  4. MESALAMINE [Concomitant]
  5. REMICADE [Suspect]
     Route: 042
     Dates: start: 20050520
  6. REMICADE [Suspect]
     Indication: FISTULA
     Dosage: TOTAL 8 DOSES
     Route: 042
     Dates: start: 20060531
  7. CIPROFLOXACIN HCL [Concomitant]
  8. MIRALAX [Concomitant]

REACTIONS (3)
  - ANAL ABSCESS [None]
  - RECTAL ABSCESS [None]
  - ANAL FISTULA [None]
